FAERS Safety Report 4672815-6 (Version None)
Quarter: 2005Q2

REPORT INFORMATION
  Report Type: 
  Country: None (occurrence: None)
  Receive Date: 20050523
  Receipt Date: 20050512
  Transmission Date: 20051028
  Serious: Yes (Other)
  Sender: FDA-Public Use
  Company Number: UKP05000171

PATIENT
  Age: 68 Year
  Sex: Female

DRUGS (2)
  1. DIDRONEL [Suspect]
     Indication: OSTEOPOROSIS PROPHYLAXIS
     Dosage: 0
  2. CORTICOSTEROIDS [Concomitant]

REACTIONS (2)
  - BREAST MASS [None]
  - HEADACHE [None]
